FAERS Safety Report 6292847-4 (Version None)
Quarter: 2009Q3

REPORT INFORMATION
  Report Type: 
  Country: None (occurrence: None)
  Receive Date: 20090731
  Receipt Date: 20090722
  Transmission Date: 20100115
  Serious: Yes (Other)
  Sender: FDA-Public Use
  Company Number: PHHY2009CA26145

PATIENT
  Sex: Female

DRUGS (3)
  1. DIOVAN HCT [Suspect]
     Dosage: 80/12.5 MG/DAY
     Route: 048
  2. DIOVAN HCT [Suspect]
     Dosage: 160/25 MG/DAY
     Route: 048
  3. ASPIRIN [Concomitant]

REACTIONS (5)
  - ARTHRITIS [None]
  - BACK PAIN [None]
  - CATARACT OPERATION [None]
  - EPISTAXIS [None]
  - MOVEMENT DISORDER [None]
